FAERS Safety Report 17333139 (Version 1)
Quarter: 2020Q1

REPORT INFORMATION
  Report Type: Spontaneous
  Country: SE (occurrence: SE)
  Receive Date: 20200128
  Receipt Date: 20200128
  Transmission Date: 20200409
  Serious: Yes (Hospitalization)
  Sender: FDA-Public Use
  Company Number: SE-MYLANLABS-2020M1010083

PATIENT
  Age: 22 Year
  Sex: Male

DRUGS (2)
  1. DEPAKINE RETARD [Suspect]
     Active Substance: VALPROIC ACID
     Indication: PRODUCT USED FOR UNKNOWN INDICATION
     Dosage: ^EV TV? TA DEPANKINE^
     Route: 048
     Dates: start: 20190807, end: 20190807
  2. LERGIGAN (PROMETHAZINE HYDROCHLORIDE) [Suspect]
     Active Substance: PROMETHAZINE HYDROCHLORIDE
     Indication: PRODUCT USED FOR UNKNOWN INDICATION
     Dosage: 1250 MILLIGRAM
     Route: 048
     Dates: start: 20190807, end: 20190807

REACTIONS (14)
  - Intentional self-injury [Unknown]
  - Tachypnoea [Unknown]
  - Dissociation [Unknown]
  - Hallucination [Unknown]
  - Somnolence [Unknown]
  - Miosis [Unknown]
  - Akathisia [Unknown]
  - Urinary retention [Unknown]
  - Dysarthria [Unknown]
  - Snoring [Unknown]
  - Agitation [Unknown]
  - Tachycardia [Unknown]
  - Dry mouth [Unknown]
  - Intentional overdose [Unknown]

NARRATIVE: CASE EVENT DATE: 20190807
